FAERS Safety Report 21792935 (Version 1)
Quarter: 2022Q4

REPORT INFORMATION
  Report Type: Spontaneous
  Country: NL (occurrence: NL)
  Receive Date: 20221229
  Receipt Date: 20221229
  Transmission Date: 20230113
  Serious: Yes (Other)
  Sender: FDA-Public Use
  Company Number: NL-ALKEM LABORATORIES LIMITED-NL-ALKEM-2022-11770

PATIENT

DRUGS (1)
  1. SIROLIMUS [Suspect]
     Active Substance: SIROLIMUS
     Indication: Vascular malformation
     Dosage: UNK (LOW DOSE SIROLIMUS WITH TARGET LEVELS RANGING BETWEEN 4 AND 10 NG/ML)
     Route: 065

REACTIONS (3)
  - Neutropenia [Unknown]
  - Infection [Unknown]
  - Toxicity to various agents [Unknown]
